FAERS Safety Report 13512385 (Version 2)
Quarter: 2018Q2

REPORT INFORMATION
  Report Type: Spontaneous
  Country: IT (occurrence: IT)
  Receive Date: 20170504
  Receipt Date: 20180420
  Transmission Date: 20180711
  Serious: Yes (Hospitalization, Other)
  Sender: FDA-Public Use
  Company Number: IT-JNJFOC-20170423840

PATIENT
  Age: 10 Year
  Sex: Female

DRUGS (8)
  1. IBUPROFEN. [Suspect]
     Active Substance: IBUPROFEN
     Route: 048
  2. IBUPROFEN. [Suspect]
     Active Substance: IBUPROFEN
     Indication: PRODUCT USED FOR UNKNOWN INDICATION
     Route: 048
  3. FLUTICASONE PROPIONATE W/SALMETEROL XINAFOATE [Concomitant]
     Active Substance: FLUTICASONE PROPIONATE\SALMETEROL XINAFOATE
     Indication: ASTHMA
     Route: 065
  4. IBUPROFEN. [Suspect]
     Active Substance: IBUPROFEN
     Indication: DRUG PROVOCATION TEST
     Route: 048
  5. FLURBIPROFEN. [Suspect]
     Active Substance: FLURBIPROFEN
     Indication: LARYNGITIS
     Route: 048
  6. FLUTICASONE. [Concomitant]
     Active Substance: FLUTICASONE
     Indication: ASTHMA
     Route: 065
  7. IBUPROFEN. [Suspect]
     Active Substance: IBUPROFEN
     Route: 048
  8. PARACETAMOL [Concomitant]
     Active Substance: ACETAMINOPHEN
     Indication: PRODUCT USED FOR UNKNOWN INDICATION
     Route: 065

REACTIONS (16)
  - Lip oedema [Recovered/Resolved]
  - Swollen tongue [Recovered/Resolved]
  - Lip oedema [Unknown]
  - Drug hypersensitivity [Recovered/Resolved]
  - Paraesthesia oral [Recovering/Resolving]
  - Paraesthesia oral [Recovered/Resolved]
  - Hypersensitivity [Recovered/Resolved]
  - Eyelid oedema [Recovered/Resolved]
  - Hypoaesthesia oral [Recovered/Resolved]
  - Hypoaesthesia oral [Unknown]
  - Erythema [Recovering/Resolving]
  - Erythema [Recovered/Resolved]
  - Paraesthesia [Recovered/Resolved]
  - Lip swelling [Recovered/Resolved]
  - Angioedema [Recovered/Resolved]
  - Laryngeal oedema [Recovered/Resolved]
